FAERS Safety Report 5886898-9 (Version None)
Quarter: 2008Q3

REPORT INFORMATION
  Report Type: 
  Country: None (occurrence: None)
  Receive Date: 20080915
  Receipt Date: 20080901
  Transmission Date: 20090109
  Serious: Yes (Death)
  Sender: FDA-Public Use
  Company Number: 004087

PATIENT
  Sex: Male

DRUGS (3)
  1. PLETAL [Suspect]
     Dosage: 100 MG, ORAL
     Route: 048
     Dates: start: 20070323
  2. NAFTIDROFURYL OXALATE (NAFTIDROFURYL OXALATE) [Concomitant]
  3. OMEPRAZOLE [Concomitant]

REACTIONS (1)
  - DEATH [None]
